FAERS Safety Report 8824752 (Version 2)
Quarter: 2012Q4

REPORT INFORMATION
  Report Type: 
  Country: JP (occurrence: JP)
  Receive Date: 20121004
  Receipt Date: 20121009
  Transmission Date: 20130627
  Serious: Yes (Other)
  Sender: FDA-Public Use
  Company Number: JP-PFIZER INC-2012242784

PATIENT
  Age: 69 Year
  Sex: Male

DRUGS (9)
  1. SEIBULE [Suspect]
     Indication: TYPE 2 DIABETES MELLITUS
     Dosage: 50 mg, 3x/day
     Route: 048
     Dates: start: 20120530, end: 20120729
  2. JANUVIA [Concomitant]
     Dosage: UNK
     Dates: start: 20120530, end: 20120729
  3. GLYCORAN [Concomitant]
     Dosage: UNK
     Dates: start: 20120530, end: 20120729
  4. PREMINENT [Concomitant]
     Dosage: UNK
  5. NORVASC [Concomitant]
     Dosage: UNK
  6. LIVALO [Concomitant]
     Dosage: UNK
  7. CARDENALIN [Concomitant]
     Dosage: UNK
  8. GLUCOBAY [Concomitant]
     Dosage: UNK
     Dates: start: 20120730
  9. MEDET [Concomitant]
     Dosage: UNK
     Dates: start: 20120730

REACTIONS (3)
  - Dysgeusia [Not Recovered/Not Resolved]
  - Parosmia [Not Recovered/Not Resolved]
  - Paraesthesia oral [Not Recovered/Not Resolved]
